FAERS Safety Report 11800657 (Version 1)
Quarter: 2015Q4

REPORT INFORMATION
  Report Type: Spontaneous
  Country: FR (occurrence: FR)
  Receive Date: 20151204
  Receipt Date: 20151204
  Transmission Date: 20160305
  Serious: Yes (Hospitalization)
  Sender: FDA-Public Use
  Company Number: FR-ROCHE-1671748

PATIENT
  Age: 60 Year
  Sex: Female

DRUGS (9)
  1. RAMIPRIL. [Concomitant]
     Active Substance: RAMIPRIL
  2. DOCETAXEL. [Suspect]
     Active Substance: DOCETAXEL
     Dosage: 07/SEP/2015.
     Route: 042
     Dates: start: 20150817
  3. ENDOXAN [Concomitant]
     Active Substance: CYCLOPHOSPHAMIDE
     Dosage: SAME ON 06/JUL/2015.
     Route: 065
     Dates: start: 20150616
  4. DOCETAXEL. [Suspect]
     Active Substance: DOCETAXEL
     Indication: BREAST CANCER
     Route: 042
     Dates: start: 20150727, end: 20151107
  5. HERCEPTIN [Suspect]
     Active Substance: TRASTUZUMAB
     Indication: BREAST CANCER
     Dosage: SAME ON 17/AUG/2015, 07/SEP/2015.
     Route: 058
     Dates: start: 20150727, end: 20150907
  6. DOXORUBICINE [Suspect]
     Active Substance: DOXORUBICIN
     Dosage: SAME ON 06/JUL/2015.
     Route: 042
     Dates: start: 20150616
  7. BISOCE [Concomitant]
     Active Substance: BISOPROLOL
  8. ENDOXAN [Concomitant]
     Active Substance: CYCLOPHOSPHAMIDE
     Dosage: SAME DOSE RECIEVED ON 26/MAY/2015
     Route: 065
     Dates: start: 20150526
  9. DOXORUBICINE [Suspect]
     Active Substance: DOXORUBICIN
     Indication: BREAST CANCER
     Dosage: SAME DOSE RECIEVED ON 26/MAY/2015
     Route: 042
     Dates: start: 20150504, end: 20150706

REACTIONS (2)
  - Ejection fraction decreased [Unknown]
  - Acute pulmonary oedema [Recovered/Resolved]

NARRATIVE: CASE EVENT DATE: 20150920
